FAERS Safety Report 21715527 (Version 1)
Quarter: 2022Q4

REPORT INFORMATION
  Report Type: Spontaneous
  Country: US (occurrence: None)
  Receive Date: 20221209
  Receipt Date: 20221209
  Transmission Date: 20230113
  Serious: No
  Sender: FDA-Public Use
  Company Number: None

PATIENT
  Age: 62 Year
  Sex: Female
  Weight: 67.5 kg

DRUGS (3)
  1. PROLIA [Suspect]
     Active Substance: DENOSUMAB
     Indication: Osteoporosis
  2. PROLIA [Concomitant]
     Active Substance: DENOSUMAB
  3. Multivitamin Calcium [Concomitant]

REACTIONS (4)
  - Pain in extremity [None]
  - Dysgeusia [None]
  - Dry mouth [None]
  - Feeling abnormal [None]

NARRATIVE: CASE EVENT DATE: 20220115
